FAERS Safety Report 9954417 (Version 1)
Quarter: 2014Q1

REPORT INFORMATION
  Report Type: Spontaneous
  Country: US (occurrence: US)
  Receive Date: 20140304
  Receipt Date: 20140304
  Transmission Date: 20141002
  Serious: Yes (Other)
  Sender: FDA-Public Use
  Company Number: US-PFIZER INC-2014055770

PATIENT
  Age: 58 Year
  Sex: Female

DRUGS (2)
  1. CHANTIX [Suspect]
     Indication: EX-TOBACCO USER
     Dosage: UNK
     Route: 055
  2. ADVAIR [Suspect]
     Indication: CHRONIC OBSTRUCTIVE PULMONARY DISEASE
     Dosage: UNK
     Route: 055

REACTIONS (16)
  - Grand mal convulsion [Unknown]
  - Convulsion [Unknown]
  - Pneumonia [Unknown]
  - Cough [Unknown]
  - Dyspnoea exertional [Recovering/Resolving]
  - Stress [Not Recovered/Not Resolved]
  - Malaise [Unknown]
  - Bronchitis [Unknown]
  - Influenza [Unknown]
  - Nasopharyngitis [Unknown]
  - White blood cell count increased [Recovered/Resolved]
  - Drug administration error [Unknown]
  - Mood altered [Unknown]
  - Panic attack [Unknown]
  - Dyspnoea [Recovering/Resolving]
  - Arthritis [Unknown]
